FAERS Safety Report 17000745 (Version 1)
Quarter: 2019Q4

REPORT INFORMATION
  Report Type: Spontaneous
  Country: US (occurrence: US)
  Receive Date: 20191106
  Receipt Date: 20191106
  Transmission Date: 20200122
  Serious: Yes (Other)
  Sender: FDA-Public Use
  Company Number: US-JNJFOC-20191044552

PATIENT
  Age: 48 Year
  Sex: Male
  Weight: 97.16 kg

DRUGS (14)
  1. FAMOTIDINE. [Concomitant]
     Active Substance: FAMOTIDINE
     Route: 065
  2. DULOXETINE. [Concomitant]
     Active Substance: DULOXETINE
     Dosage: AS DIRECTED
     Route: 065
  3. FINASTERIDE. [Concomitant]
     Active Substance: FINASTERIDE
     Route: 065
  4. LORAZEPAM. [Concomitant]
     Active Substance: LORAZEPAM
     Route: 065
  5. TIZANIDINE. [Concomitant]
     Active Substance: TIZANIDINE
     Dosage: AS DIRECTED
     Route: 065
  6. VITAMIN B12 [Concomitant]
     Active Substance: CYANOCOBALAMIN
     Dosage: AS DIRECTED
     Route: 065
  7. IRON [Concomitant]
     Active Substance: IRON
     Dosage: AS DIRECTED
     Route: 065
  8. OMEPRAZOLE. [Concomitant]
     Active Substance: OMEPRAZOLE
     Dosage: 30 MINUTES BEFORE MEALS
     Route: 065
  9. TRAZODONE [Concomitant]
     Active Substance: TRAZODONE HYDROCHLORIDE
     Dosage: AS DIRECTED
     Route: 065
  10. GABAPENTIN. [Concomitant]
     Active Substance: GABAPENTIN
     Dosage: AS DIRECTED
     Route: 065
  11. REGLAN [Concomitant]
     Active Substance: METOCLOPRAMIDE HYDROCHLORIDE
     Dosage: AS DIRECTED
     Route: 065
  12. REMICADE [Suspect]
     Active Substance: INFLIXIMAB
     Indication: COLITIS ULCERATIVE
     Route: 042
     Dates: start: 2007
  13. OXYCONTIN [Concomitant]
     Active Substance: OXYCODONE HYDROCHLORIDE
     Route: 065
  14. TRAMADOL HYDROCHLORIDE. [Concomitant]
     Active Substance: TRAMADOL HYDROCHLORIDE
     Dosage: AS DIRECTED
     Route: 065

REACTIONS (4)
  - Off label use [Unknown]
  - Herpes zoster [Not Recovered/Not Resolved]
  - Herpes zoster oticus [Not Recovered/Not Resolved]
  - Product use issue [Unknown]

NARRATIVE: CASE EVENT DATE: 2007
